FAERS Safety Report 17948056 (Version 2)
Quarter: 2020Q3

REPORT INFORMATION
  Report Type: Spontaneous
  Country: US (occurrence: US)
  Receive Date: 20200626
  Receipt Date: 20200902
  Transmission Date: 20201103
  Serious: No
  Sender: FDA-Public Use
  Company Number: US-TEVA-2020-US-1247548

PATIENT
  Sex: Female

DRUGS (2)
  1. CINQAIR [Suspect]
     Active Substance: RESLIZUMAB
     Indication: ASTHMA
     Dosage: LAST ADMINISTRATION DATE ON ?JAN?2020
     Route: 042
     Dates: start: 201912
  2. CINQAIR [Suspect]
     Active Substance: RESLIZUMAB
     Dosage: LAST ADMINISTRATION DATE ON ?FEB?2020
     Route: 042
     Dates: end: 202002

REACTIONS (2)
  - Oropharyngeal pain [Recovered/Resolved]
  - Chest pain [Unknown]
